FAERS Safety Report 5477750-1 (Version None)
Quarter: 2007Q3

REPORT INFORMATION
  Report Type: 
  Country: None (occurrence: None)
  Receive Date: 20070831
  Receipt Date: 20070705
  Transmission Date: 20080115
  Serious: No
  Sender: FDA-Public Use
  Company Number: PHEH2007US09567

PATIENT
  Age: 60 Year
  Sex: Female

DRUGS (2)
  1. EXJADE [Suspect]
     Indication: MYELODYSPLASTIC SYNDROME
     Dosage: 1000 MG, QD, ORAL
     Route: 048
     Dates: start: 20070625
  2. ACETAMINOPHEN [Concomitant]

REACTIONS (3)
  - ANOREXIA [None]
  - FATIGUE [None]
  - PYREXIA [None]
